FAERS Safety Report 16173336 (Version 1)
Quarter: 2019Q2

REPORT INFORMATION
  Report Type: Report from Study
  Country: US (occurrence: US)
  Receive Date: 20190409
  Receipt Date: 20190409
  Transmission Date: 20190711
  Serious: Yes (Death, Hospitalization, Other)
  Sender: FDA-Public Use
  Company Number: US-EISAI MEDICAL RESEARCH-EC-2019-053652

PATIENT
  Age: 57 Year
  Sex: Female

DRUGS (2)
  1. GABAPENTIN. [Concomitant]
     Active Substance: GABAPENTIN
  2. LENVIMA [Suspect]
     Active Substance: LENVATINIB
     Indication: PAPILLARY SEROUS ENDOMETRIAL CARCINOMA
     Route: 048
     Dates: start: 20190311, end: 20190331

REACTIONS (7)
  - Peripheral swelling [Not Recovered/Not Resolved]
  - Deep vein thrombosis [Fatal]
  - Myalgia [Not Recovered/Not Resolved]
  - Fall [Not Recovered/Not Resolved]
  - Thrombosis [Not Recovered/Not Resolved]
  - Hypoaesthesia [Recovering/Resolving]
  - Muscular weakness [Recovering/Resolving]

NARRATIVE: CASE EVENT DATE: 201903
